FAERS Safety Report 7473597-5 (Version None)
Quarter: 2011Q2

REPORT INFORMATION
  Report Type: 
  Country: None (occurrence: None)
  Receive Date: 20110511
  Receipt Date: 20110422
  Transmission Date: 20111010
  Serious: No
  Sender: FDA-Public Use
  Company Number: US-B.I. PHARMACEUTICALS,INC./RIDGEFIELD-2011-BP-07355BP

PATIENT
  Sex: Male

DRUGS (12)
  1. DIGOXIN [Concomitant]
  2. PRADAXA [Suspect]
     Dosage: 150 MG
     Route: 048
  3. ZAROXOLYN [Concomitant]
  4. AMBIEN [Concomitant]
  5. LEVENUR [Concomitant]
  6. VALIUM [Concomitant]
  7. COREG [Concomitant]
  8. LASIX [Concomitant]
  9. IMDUR [Concomitant]
  10. ZOCOR [Concomitant]
  11. PLAVIX [Concomitant]
  12. PRADAXA [Suspect]
     Indication: ATRIAL FIBRILLATION
     Dosage: 300 MG
     Route: 048

REACTIONS (2)
  - CHEST PAIN [None]
  - GLOMERULAR FILTRATION RATE DECREASED [None]
